FAERS Safety Report 9341494 (Version 1)
Quarter: 2013Q2

REPORT INFORMATION
  Report Type: Report from Study
  Country: CA (occurrence: CA)
  Receive Date: 20130611
  Receipt Date: 20130611
  Transmission Date: 20140414
  Serious: Yes (Hospitalization)
  Sender: FDA-Public Use
  Company Number: CA-JNJFOC-20130315589

PATIENT
  Age: 34 Year
  Sex: Female
  Weight: 92.5 kg

DRUGS (4)
  1. REMICADE [Suspect]
     Indication: RHEUMATOID ARTHRITIS
     Route: 042
     Dates: start: 20090211
  2. REMICADE [Suspect]
     Indication: RHEUMATOID ARTHRITIS
     Route: 042
     Dates: start: 2003
  3. DILAUDID [Concomitant]
     Indication: PAIN
     Dosage: 2 MG PO PRN
     Route: 048
  4. ASPIRIN [Concomitant]
     Route: 065

REACTIONS (1)
  - Hip arthroplasty [Recovering/Resolving]
